FAERS Safety Report 5477368-0 (Version None)
Quarter: 2007Q4

REPORT INFORMATION
  Report Type: 
  Country: None (occurrence: None)
  Receive Date: 20071001
  Receipt Date: 20070925
  Transmission Date: 20080405
  Serious: Yes (Other)
  Sender: FDA-Public Use
  Company Number: 2007SP019356

PATIENT
  Age: 45 Year
  Sex: Female

DRUGS (1)
  1. BETAMETHASONE [Suspect]
     Indication: ASTHMA
     Dosage: 2 MG;QD;PO
     Route: 048
     Dates: start: 20070918

REACTIONS (2)
  - ANGIOEDEMA [None]
  - PHARYNGOLARYNGEAL DISCOMFORT [None]
